FAERS Safety Report 8930333 (Version 1)
Quarter: 2012Q4

REPORT INFORMATION
  Report Type: 
  Country: US (occurrence: US)
  Receive Date: 20121128
  Receipt Date: 20121128
  Transmission Date: 20130627
  Serious: No
  Sender: FDA-Public Use
  Company Number: US-BAYER-2012-123380

PATIENT
  Sex: Female

DRUGS (2)
  1. ALEVE GELCAP [Suspect]
     Dosage: 2 DF, BID
     Route: 048
     Dates: start: 2011
  2. VITAMINS NOS [Concomitant]

REACTIONS (3)
  - Feeling abnormal [None]
  - Overdose [None]
  - Incorrect drug administration duration [None]
